FAERS Safety Report 16106679 (Version 1)
Quarter: 2019Q1

REPORT INFORMATION
  Report Type: Spontaneous
  Country: US (occurrence: US)
  Receive Date: 20190322
  Receipt Date: 20190322
  Transmission Date: 20190418
  Serious: No
  Sender: FDA-Public Use
  Company Number: US-JNJFOC-20190237215

PATIENT
  Sex: Male

DRUGS (6)
  1. STELARA [Suspect]
     Active Substance: USTEKINUMAB
     Indication: CROHN^S DISEASE
     Route: 058
     Dates: start: 201706
  2. STELARA [Suspect]
     Active Substance: USTEKINUMAB
     Indication: COLITIS ULCERATIVE
     Route: 058
     Dates: start: 201706
  3. STELARA [Suspect]
     Active Substance: USTEKINUMAB
     Indication: POUCHITIS
     Route: 058
     Dates: start: 20180604
  4. STELARA [Suspect]
     Active Substance: USTEKINUMAB
     Indication: POUCHITIS
     Route: 058
     Dates: start: 201706
  5. STELARA [Suspect]
     Active Substance: USTEKINUMAB
     Indication: CROHN^S DISEASE
     Route: 058
     Dates: start: 20180604
  6. STELARA [Suspect]
     Active Substance: USTEKINUMAB
     Indication: COLITIS ULCERATIVE
     Route: 058
     Dates: start: 20180604

REACTIONS (4)
  - Product use issue [Unknown]
  - Fistula [Unknown]
  - Ulcer [Unknown]
  - Off label use [Unknown]

NARRATIVE: CASE EVENT DATE: 201712
